FAERS Safety Report 6609702-X (Version None)
Quarter: 2010Q1

REPORT INFORMATION
  Report Type: 
  Country: None (occurrence: None)
  Receive Date: 20100302
  Receipt Date: 20100223
  Transmission Date: 20100710
  Serious: Yes (Other)
  Sender: FDA-Public Use
  Company Number: CA-JNJFOC-20100210252

PATIENT
  Age: 60 Year
  Sex: Female

DRUGS (1)
  1. RISPERDAL CONSTA [Suspect]
     Indication: DRUG USE FOR UNKNOWN INDICATION
     Route: 030

REACTIONS (12)
  - AURICULAR SWELLING [None]
  - BLADDER DISORDER [None]
  - CHANGE OF BOWEL HABIT [None]
  - FACE OEDEMA [None]
  - GAIT DISTURBANCE [None]
  - HYPOACUSIS [None]
  - LUNG DISORDER [None]
  - LYMPHADENOPATHY [None]
  - NERVOUS SYSTEM DISORDER [None]
  - OVARIAN DISORDER [None]
  - RENAL DISORDER [None]
  - SWELLING [None]
